FAERS Safety Report 8266025-3 (Version None)
Quarter: 2012Q1

REPORT INFORMATION
  Report Type: 
  Country: None (occurrence: None)
  Receive Date: 20120327
  Receipt Date: 20090917
  Transmission Date: 20120608
  Serious: Yes (Life-Threatening)
  Sender: FDA-Public Use
  Company Number: PHEH2009US08354

PATIENT
  Age: 79 Year
  Sex: Female

DRUGS (7)
  1. GLEEVEC [Suspect]
     Indication: CHRONIC MYELOID LEUKAEMIA
     Dosage: 200 MG, BID, ORAL
     Route: 048
     Dates: start: 20090521, end: 20090723
  2. METOPROLOL TARTRATE [Concomitant]
  3. HYDROCHLOROTHIAZIDE [Concomitant]
  4. CALCIUM CARBONATE [Concomitant]
  5. LIPITOR [Concomitant]
  6. ASPIRIN [Concomitant]
  7. POTASSIUM CHLORIDE [Concomitant]

REACTIONS (12)
  - RASH MACULO-PAPULAR [None]
  - DYSPHAGIA [None]
  - PRURITUS [None]
  - ANAPHYLACTIC REACTION [None]
  - ANGIOEDEMA [None]
  - LIP SWELLING [None]
  - DYSPNOEA [None]
  - PHARYNGEAL OEDEMA [None]
  - PERIORBITAL OEDEMA [None]
  - VOMITING [None]
  - THROAT TIGHTNESS [None]
  - SWOLLEN TONGUE [None]
